FAERS Safety Report 17109047 (Version 8)
Quarter: 2020Q4

REPORT INFORMATION
  Report Type: Spontaneous
  Country: AU (occurrence: AU)
  Receive Date: 20191204
  Receipt Date: 20201204
  Transmission Date: 20210113
  Serious: Yes (Hospitalization, Other)
  Sender: FDA-Public Use
  Company Number: AU-ROCHE-2484559

PATIENT
  Age: 47 Year
  Sex: Male
  Weight: 135 kg

DRUGS (4)
  1. HEMLIBRA [Suspect]
     Active Substance: EMICIZUMAB-KXWH
     Route: 058
  2. NOVOSEVEN [Concomitant]
     Active Substance: COAGULATION FACTOR VIIA RECOMBINANT HUMAN
  3. HEMLIBRA [Suspect]
     Active Substance: EMICIZUMAB-KXWH
     Indication: HAEMOPHILIA A WITH ANTI FACTOR VIII
     Dosage: FORTNIGHTLY, TILL FOUR WEEKS
     Route: 058
     Dates: start: 20191106
  4. NOVOSEVEN [Concomitant]
     Active Substance: COAGULATION FACTOR VIIA RECOMBINANT HUMAN
     Dosage: WITH GRADUAL WEAN OVER TWO WEEKS
     Route: 042
     Dates: start: 20191029, end: 20191113

REACTIONS (8)
  - Weight increased [Unknown]
  - Groin pain [Unknown]
  - Back pain [Unknown]
  - Carotid artery perforation [Unknown]
  - Device related thrombosis [Recovered/Resolved]
  - Hypotension [Unknown]
  - Abdominal wall haematoma [Unknown]
  - Hyperhidrosis [Unknown]

NARRATIVE: CASE EVENT DATE: 20191115
